FAERS Safety Report 7791933-7 (Version None)
Quarter: 2011Q3

REPORT INFORMATION
  Report Type: 
  Country: None (occurrence: None)
  Receive Date: 20110929
  Receipt Date: 20110920
  Transmission Date: 20111222
  Serious: Yes (Death)
  Sender: FDA-Public Use
  Company Number: KV201000195

PATIENT
  Age: 50 Year
  Sex: Female
  Weight: 66.6788 kg

DRUGS (15)
  1. DIAZEPAM [Concomitant]
  2. METHYLPREDNISOLONE [Concomitant]
  3. LEVAQUIN [Concomitant]
  4. MORPHINE SULFATE [Suspect]
     Dosage: ,QID, ORAL
     Route: 048
     Dates: start: 20081024, end: 20081026
  5. OXYGEN (OXYGEN) [Concomitant]
  6. SEROQUEL [Concomitant]
  7. BUTALBITAL ACETAMINOPHEN AND CAFFEINE [Concomitant]
  8. HYDROXYZINE [Concomitant]
  9. CEFACLOR [Concomitant]
  10. CYMBALTA [Concomitant]
  11. FLUOXETINE HYDROCHLORIDE [Concomitant]
  12. PROMETHAZINE VC W/CODEINE   /01132501/(CODEINE PHOSPHATE, PHENYLEPHRIN [Concomitant]
  13. MAGNESIUM OXIDE (MAGNESIUM OXIDE) [Concomitant]
  14. PREMARIN [Concomitant]
  15. ZOLPIDEM [Concomitant]

REACTIONS (4)
  - DYSARTHRIA [None]
  - MULTIPLE INJURIES [None]
  - GAIT DISTURBANCE [None]
  - SUDDEN CARDIAC DEATH [None]
